FAERS Safety Report 7049705-7 (Version None)
Quarter: 2010Q4

REPORT INFORMATION
  Report Type: 
  Country: None (occurrence: None)
  Receive Date: 20101018
  Receipt Date: 20101008
  Transmission Date: 20110411
  Serious: Yes (Hospitalization)
  Sender: FDA-Public Use
  Company Number: A0886943A

PATIENT
  Age: 58 Year
  Sex: Female

DRUGS (1)
  1. AVANDARYL [Suspect]
     Dosage: 1TAB PER DAY
     Dates: start: 20060126, end: 20070601

REACTIONS (1)
  - CEREBROVASCULAR ACCIDENT [None]
